FAERS Safety Report 5382459-9 (Version None)
Quarter: 2007Q3

REPORT INFORMATION
  Report Type: 
  Country: None (occurrence: None)
  Receive Date: 20070710
  Receipt Date: 20070702
  Transmission Date: 20080115
  Serious: Yes (Hospitalization)
  Sender: FDA-Public Use
  Company Number: NLWYE948102JUL07

PATIENT
  Sex: Female

DRUGS (2)
  1. EFFEXOR XR [Suspect]
     Indication: DEPRESSION
     Route: 048
     Dates: start: 20060118, end: 20060701
  2. EFFEXOR XR [Suspect]
     Route: 048
     Dates: start: 20060701

REACTIONS (1)
  - DRUG EXPOSURE DURING PREGNANCY [None]
